FAERS Safety Report 24955451 (Version 1)
Quarter: 2025Q1

REPORT INFORMATION
  Report Type: Spontaneous
  Country: AE (occurrence: AE)
  Receive Date: 20250211
  Receipt Date: 20250211
  Transmission Date: 20250409
  Serious: Yes (Other)
  Sender: REGENERON
  Company Number: AE-BAYER-2024A182767

PATIENT
  Age: 53 Year
  Sex: Male

DRUGS (1)
  1. EYLEA [Suspect]
     Active Substance: AFLIBERCEPT
     Indication: Diabetic retinopathy
     Route: 031

REACTIONS (1)
  - Cyclodialysis cleft [Recovering/Resolving]
